FAERS Safety Report 6656002-8 (Version None)
Quarter: 2010Q1

REPORT INFORMATION
  Report Type: 
  Country: None (occurrence: None)
  Receive Date: 20100329
  Receipt Date: 20100317
  Transmission Date: 20100710
  Serious: Yes (Other)
  Sender: FDA-Public Use
  Company Number: US-PFIZER INC-2005126424

PATIENT
  Sex: Male
  Weight: 98 kg

DRUGS (7)
  1. TIKOSYN [Suspect]
     Indication: CARDIAC FIBRILLATION
     Dosage: 500 UG, 2X/DAY
     Route: 065
     Dates: start: 20050801
  2. TIKOSYN [Interacting]
     Indication: HEART RATE IRREGULAR
  3. FLOMAX [Interacting]
     Indication: MICTURITION DISORDER
     Dosage: 0.4 MG, UNK
     Dates: start: 20100202
  4. AMPICILLIN [Interacting]
     Indication: PROSTATITIS
     Dosage: TID  INTERAVL:  EVERY DAY
     Route: 065
     Dates: start: 20050831
  5. TOPROL-XL [Concomitant]
     Indication: CARDIAC FIBRILLATION
     Dosage: TWICE DAILY
     Route: 065
  6. ASPIRIN [Concomitant]
     Dosage: ONCE DAILY
     Route: 065
  7. SOTALOL HCL [Concomitant]
     Indication: CARDIAC FIBRILLATION
     Route: 065

REACTIONS (6)
  - ABDOMINAL DISCOMFORT [None]
  - ASTHENIA [None]
  - ATRIAL FIBRILLATION [None]
  - BLOOD PRESSURE DECREASED [None]
  - DIZZINESS [None]
  - DRUG INTERACTION [None]
